FAERS Safety Report 7911333-6 (Version None)
Quarter: 2011Q4

REPORT INFORMATION
  Report Type: 
  Country: None (occurrence: None)
  Receive Date: 20111114
  Receipt Date: 20111103
  Transmission Date: 20120403
  Serious: Yes (Hospitalization)
  Sender: FDA-Public Use
  Company Number: US-ELI_LILLY_AND_COMPANY-US201111001824

PATIENT
  Sex: Female

DRUGS (3)
  1. HUMALOG [Suspect]
     Indication: TYPE 2 DIABETES MELLITUS
     Dosage: UNK UNK, TID
  2. LANTUS [Concomitant]
     Dosage: UNK UNK, EACH EVENING
  3. CORTICOSTEROIDS [Concomitant]

REACTIONS (5)
  - HOSPITALISATION [None]
  - PAIN IN EXTREMITY [None]
  - INJECTION SITE PAIN [None]
  - VISUAL ACUITY REDUCED [None]
  - OEDEMA PERIPHERAL [None]
